FAERS Safety Report 8470404 (Version 3)
Quarter: 2012Q4

REPORT INFORMATION
  Report Type: 
  Country: US (occurrence: US)
  Receive Date: 20120321
  Receipt Date: 20120830
  Transmission Date: 20130627
  Serious: Yes (Other)
  Sender: FDA-Public Use
  Company Number: US-JNJFOC-20120307083

PATIENT
  Age: 56 Year
  Sex: Female

DRUGS (2)
  1. SIMPONI [Suspect]
     Indication: AUTOIMMUNE DISORDER
     Route: 058
     Dates: start: 20120303
  2. SIMPONI [Suspect]
     Indication: AUTOIMMUNE DISORDER
     Dosage: patient^s 5th dose
     Route: 058
     Dates: start: 20120721

REACTIONS (4)
  - Depression [Unknown]
  - Mood swings [Unknown]
  - Off label use [Unknown]
  - Drug ineffective [Unknown]
